FAERS Safety Report 11707742 (Version 1)
Quarter: 2015Q4

REPORT INFORMATION
  Report Type: Spontaneous
  Country: US (occurrence: US)
  Receive Date: 20151104
  Receipt Date: 20151104
  Transmission Date: 20160304
  Serious: No
  Sender: FDA-Public Use
  Company Number: US-ELI_LILLY_AND_COMPANY-US201106001993

PATIENT
  Age: 82 Year
  Sex: Female

DRUGS (7)
  1. LEVOTHYROXINE. [Concomitant]
     Active Substance: LEVOTHYROXINE
     Dosage: .05 MG, UNK
  2. ASPIRIN. [Concomitant]
     Active Substance: ASPIRIN
  3. FORTEO [Suspect]
     Active Substance: TERIPARATIDE
     Indication: OSTEOPOROSIS
     Dosage: 20 UG, QD
     Dates: start: 20110525, end: 20110621
  4. PREMARIN [Concomitant]
     Active Substance: ESTROGENS, CONJUGATED
     Dosage: 0.3 MG, UNK
  5. BENICAR HCT [Concomitant]
     Active Substance: HYDROCHLOROTHIAZIDE\OLMESARTAN MEDOXOMIL
     Dosage: 12.5 MG, UNK
  6. NEXIUM [Concomitant]
     Active Substance: ESOMEPRAZOLE MAGNESIUM
     Dosage: 20 MG, UNK
  7. FORTEO [Suspect]
     Active Substance: TERIPARATIDE
     Dosage: 20 UG, QD
     Dates: start: 20110622, end: 20110629

REACTIONS (39)
  - Balance disorder [Unknown]
  - Gait disturbance [Recovered/Resolved]
  - Feeling abnormal [Unknown]
  - Lethargy [Unknown]
  - Terminal insomnia [Unknown]
  - Initial insomnia [Not Recovered/Not Resolved]
  - Oedema peripheral [Recovered/Resolved]
  - Adverse event [Unknown]
  - Vertigo [Unknown]
  - Dizziness [Not Recovered/Not Resolved]
  - Muscle spasms [Unknown]
  - Joint dislocation [Unknown]
  - Musculoskeletal discomfort [Not Recovered/Not Resolved]
  - Discomfort [Unknown]
  - Fear [Unknown]
  - Incorrect product storage [Unknown]
  - Nasal congestion [Unknown]
  - Dizziness [Recovered/Resolved]
  - Paraesthesia [Unknown]
  - Head discomfort [Not Recovered/Not Resolved]
  - Overdose [Unknown]
  - Nausea [Unknown]
  - Breast pain [Unknown]
  - Dry mouth [Not Recovered/Not Resolved]
  - Ear congestion [Unknown]
  - Eye discharge [Not Recovered/Not Resolved]
  - Memory impairment [Unknown]
  - Dyspnoea [Not Recovered/Not Resolved]
  - Pain in extremity [Not Recovered/Not Resolved]
  - Back pain [Unknown]
  - Feeling abnormal [Unknown]
  - Drug dose omission [Unknown]
  - Intentional product misuse [Unknown]
  - Musculoskeletal pain [Not Recovered/Not Resolved]
  - Pain [Unknown]
  - Heart rate increased [Unknown]
  - Fracture [Unknown]
  - Malaise [Not Recovered/Not Resolved]
  - Heart rate decreased [Unknown]

NARRATIVE: CASE EVENT DATE: 201106
